FAERS Safety Report 12535843 (Version 1)
Quarter: 2016Q3

REPORT INFORMATION
  Report Type: Spontaneous
  Country: US (occurrence: None)
  Receive Date: 20160706
  Receipt Date: 20160706
  Transmission Date: 20161109
  Serious: Yes (Disabling)
  Sender: FDA-Public Use
  Company Number: None

PATIENT
  Age: 79 Year
  Sex: Female
  Weight: 83.92 kg

DRUGS (10)
  1. WARFARIN SODIUM. [Concomitant]
     Active Substance: WARFARIN SODIUM
  2. HYDRALAZINE 10 MG TEVA [Suspect]
     Active Substance: HYDRALAZINE HYDROCHLORIDE
     Indication: HYPERTENSION
     Route: 048
  3. BISOPROLOL (ZEBETA) [Concomitant]
  4. VERAPAMIL [Concomitant]
     Active Substance: VERAPAMIL HYDROCHLORIDE
  5. FAMOTIDINE. [Concomitant]
     Active Substance: FAMOTIDINE
  6. SHAKLEE CHEWABLE CAL MAG PLUS [Concomitant]
  7. ZADITOR (EYEDROPS) [Concomitant]
  8. HYDRALAZINE 25 MG TEVA [Suspect]
     Active Substance: HYDRALAZINE HYDROCHLORIDE
     Indication: HYPERTENSION
     Route: 048
     Dates: start: 20160411, end: 20160412
  9. LORATADINE. [Concomitant]
     Active Substance: LORATADINE
  10. SHAKLEE D3 [Concomitant]

REACTIONS (11)
  - Dry mouth [None]
  - Dyspnoea [None]
  - Dry throat [None]
  - Paraesthesia [None]
  - Oropharyngeal pain [None]
  - Muscle spasms [None]
  - Urinary tract infection [None]
  - Chest pain [None]
  - Fatigue [None]
  - Pyrexia [None]
  - Flushing [None]

NARRATIVE: CASE EVENT DATE: 20160411
